FAERS Safety Report 22099078 (Version 2)
Quarter: 2023Q1

REPORT INFORMATION
  Report Type: Report from Study
  Country: FR (occurrence: FR)
  Receive Date: 20230315
  Receipt Date: 20230327
  Transmission Date: 20230417
  Serious: Yes (Other)
  Sender: FDA-Public Use
  Company Number: FR-ASTELLAS-2023US004364

PATIENT
  Age: 78 Year
  Sex: Male

DRUGS (23)
  1. ENFORTUMAB VEDOTIN [Suspect]
     Active Substance: ENFORTUMAB VEDOTIN
     Indication: Bladder cancer
     Dosage: 1.25 MG/KG, CYCLIC (D1, D8 AND D15 ON 21 DAYS) (C1D1)
     Route: 042
     Dates: start: 20220928
  2. ENFORTUMAB VEDOTIN [Suspect]
     Active Substance: ENFORTUMAB VEDOTIN
     Dosage: 1.25 MG/KG, CYCLIC (D1, D8 AND D15 ON 21 DAYS) (C1D8)
     Route: 042
     Dates: start: 20221005
  3. ENFORTUMAB VEDOTIN [Suspect]
     Active Substance: ENFORTUMAB VEDOTIN
     Dosage: 1.25 MG/KG, CYCLIC (D1, D8 AND D15 ON 21 DAYS) (C1D15)
     Route: 042
     Dates: start: 20221013
  4. ENFORTUMAB VEDOTIN [Suspect]
     Active Substance: ENFORTUMAB VEDOTIN
     Dosage: 1.25 MG/KG, CYCLIC (D1, D8 AND D15 ON 21 DAYS) (C2D1)
     Route: 042
     Dates: start: 20221027
  5. ENFORTUMAB VEDOTIN [Suspect]
     Active Substance: ENFORTUMAB VEDOTIN
     Dosage: 1.25 MG/KG, CYCLIC (D1, D8 AND D15 ON 21 DAYS) (C2D8)
     Route: 042
     Dates: start: 20221103
  6. ENFORTUMAB VEDOTIN [Suspect]
     Active Substance: ENFORTUMAB VEDOTIN
     Dosage: 1.25 MG/KG, CYCLIC (D1, D8 AND D15 ON 21 DAYS) (C2D15)
     Route: 042
     Dates: start: 20221110
  7. XTANDI [Suspect]
     Active Substance: ENZALUTAMIDE
     Indication: Prostate cancer
     Dosage: UNK UNK, UNKNOWN FREQ.
     Route: 065
  8. DEGARELIX [Concomitant]
     Active Substance: DEGARELIX
     Indication: Prostate cancer
     Dosage: UNK UNK, UNKNOWN FREQ.
     Route: 065
  9. TARKA [Concomitant]
     Active Substance: TRANDOLAPRIL\VERAPAMIL HYDROCHLORIDE
     Indication: Product used for unknown indication
     Dosage: 240MG/2 MG, UNKNOWN FREQ.
     Route: 065
  10. FUROSEMIDE [Concomitant]
     Active Substance: FUROSEMIDE
     Indication: Product used for unknown indication
     Route: 065
  11. FUROSEMIDE [Concomitant]
     Active Substance: FUROSEMIDE
     Route: 065
  12. ATORVASTATIN [Concomitant]
     Active Substance: ATORVASTATIN
     Indication: Product used for unknown indication
     Route: 065
  13. ATORVASTATIN [Concomitant]
     Active Substance: ATORVASTATIN
     Route: 065
  14. ASCORBIC ACID\FERROUS SULFATE [Concomitant]
     Active Substance: ASCORBIC ACID\FERROUS SULFATE
     Indication: Product used for unknown indication
     Dosage: UNK, TWICE DAILY
     Route: 065
  15. ASCORBIC ACID\FERROUS SULFATE [Concomitant]
     Active Substance: ASCORBIC ACID\FERROUS SULFATE
     Dosage: UNK, TWICE DAILY
     Route: 065
  16. EFFEXOR [Concomitant]
     Active Substance: VENLAFAXINE HYDROCHLORIDE
     Indication: Product used for unknown indication
     Dosage: 75 MG, TWICE DAILY (NUMBER OF UNITS IN THE INTERVAL 0.5)
     Route: 065
  17. EFFEXOR [Concomitant]
     Active Substance: VENLAFAXINE HYDROCHLORIDE
     Route: 065
  18. FLUTICASONE FUROATE\VILANTEROL TRIFENATATE [Concomitant]
     Active Substance: FLUTICASONE FUROATE\VILANTEROL TRIFENATATE
     Indication: Product used for unknown indication
     Dosage: 1 DF, ONCE DAILY (92)
     Route: 065
  19. FLUTICASONE FUROATE\VILANTEROL TRIFENATATE [Concomitant]
     Active Substance: FLUTICASONE FUROATE\VILANTEROL TRIFENATATE
     Dosage: UNK, ONCE DAILY
     Route: 065
  20. DAFALGAN CODEINE [Concomitant]
     Active Substance: ACETAMINOPHEN\CODEINE PHOSPHATE
     Indication: Product used for unknown indication
     Dosage: UNK UNK, AS NEEDED
     Route: 065
  21. IMOVANE [Concomitant]
     Active Substance: ZOPICLONE
     Indication: Product used for unknown indication
     Dosage: 1 DF, ONCE DAILY (IN THE EVENING)
     Route: 065
  22. VITAMIN C [Concomitant]
     Active Substance: ASCORBIC ACID
     Indication: Product used for unknown indication
     Dosage: UNK UNK, UNKNOWN FREQ.
     Route: 065
  23. OXAZEPAM [Concomitant]
     Active Substance: OXAZEPAM
     Indication: Product used for unknown indication
     Dosage: UNK UNK, UNKNOWN FREQ.
     Route: 065

REACTIONS (13)
  - Loss of consciousness [Unknown]
  - Neuropathy peripheral [Unknown]
  - General physical condition abnormal [Recovered/Resolved]
  - Memory impairment [Not Recovered/Not Resolved]
  - Restless legs syndrome [Recovered/Resolved]
  - Fall [Unknown]
  - Sleep disorder [Unknown]
  - Insomnia [Unknown]
  - Constipation [Not Recovered/Not Resolved]
  - Weight decreased [Unknown]
  - Anaemia [Unknown]
  - Fatigue [Unknown]
  - Hypoaesthesia [Not Recovered/Not Resolved]

NARRATIVE: CASE EVENT DATE: 20221001
